FAERS Safety Report 24322051 (Version 1)
Quarter: 2024Q3

REPORT INFORMATION
  Report Type: Report from Study
  Country: ZA (occurrence: None)
  Receive Date: 20240916
  Receipt Date: 20240916
  Transmission Date: 20241016
  Serious: Yes (Hospitalization, Other)
  Sender: ASTRAZENECA
  Company Number: 2024A206312

PATIENT
  Age: 20 Year
  Sex: Male

DRUGS (5)
  1. BUDESONIDE\FORMOTEROL FUMARATE DIHYDRATE [Suspect]
     Active Substance: BUDESONIDE\FORMOTEROL FUMARATE DIHYDRATE
     Indication: Asthma
     Dosage: 160 UG/INHAL UNKNOWN
     Route: 055
  2. URSODIOL [Concomitant]
     Active Substance: URSODIOL
     Route: 048
  3. ERGOCALCIFEROL [Concomitant]
     Active Substance: ERGOCALCIFEROL
     Route: 048
  4. B-CAL D SWALLOW [Concomitant]
     Indication: Mineral deficiency
     Route: 048
  5. VITAL VIT E [Concomitant]
     Route: 048

REACTIONS (2)
  - Colitis [Unknown]
  - Cystic fibrosis [Unknown]
